FAERS Safety Report 18418835 (Version 5)
Quarter: 2022Q4

REPORT INFORMATION
  Report Type: Spontaneous
  Country: US (occurrence: US)
  Receive Date: 20201023
  Receipt Date: 20221031
  Transmission Date: 20230113
  Serious: Yes (Other)
  Sender: FDA-Public Use
  Company Number: US-SA-2020SA290387

PATIENT
  Age: 67 Year
  Sex: Female

DRUGS (1)
  1. KEVZARA [Suspect]
     Active Substance: SARILUMAB
     Indication: Rheumatoid arthritis
     Dosage: 200 MG, QOW
     Route: 058
     Dates: start: 202008

REACTIONS (9)
  - Rheumatoid arthritis [Unknown]
  - Dry skin [Unknown]
  - Skin induration [Unknown]
  - Pain [Unknown]
  - Nail growth abnormal [Unknown]
  - Injection site swelling [Unknown]
  - Hair growth abnormal [Unknown]
  - Injection site erythema [Unknown]
  - Product dose omission issue [Unknown]
